FAERS Safety Report 5818657-7 (Version None)
Quarter: 2008Q3

REPORT INFORMATION
  Report Type: 
  Country: None (occurrence: None)
  Receive Date: 20080721
  Receipt Date: 20080721
  Transmission Date: 20090109
  Serious: Yes (Hospitalization)
  Sender: FDA-Public Use
  Company Number: None

PATIENT
  Age: 79 Year
  Sex: Female
  Weight: 43.0917 kg

DRUGS (2)
  1. GAMUNEX 10% (TALECRIS) 5GM/50ML [Suspect]
     Indication: AUTOIMMUNE DISORDER
     Dosage: 20 GM IV INFUSION
     Route: 042
     Dates: start: 20080707
  2. GAMUNEX 10% (TALECRIS) 5GM/50ML [Suspect]
     Indication: AUTOIMMUNE DISORDER
     Dosage: 20 GM IV INFUSION
     Route: 042
     Dates: start: 20080716

REACTIONS (2)
  - INFUSION RELATED REACTION [None]
  - URTICARIA [None]
